FAERS Safety Report 10228420 (Version 1)
Quarter: 2014Q2

REPORT INFORMATION
  Report Type: Report from Study
  Country: US (occurrence: US)
  Receive Date: 20140610
  Receipt Date: 20140610
  Transmission Date: 20141212
  Serious: Yes (Hospitalization)
  Sender: FDA-Public Use
  Company Number: US-ACTELION-A-US2014-099724

PATIENT
  Age: 46 Year
  Sex: Male

DRUGS (2)
  1. MACITENTAN [Suspect]
     Indication: COR PULMONALE CHRONIC
     Dosage: 10 MG, QD
     Route: 048
     Dates: start: 20140501
  2. REVATIO [Concomitant]

REACTIONS (1)
  - Renal failure [Unknown]
